FAERS Safety Report 5688866-9 (Version None)
Quarter: 2008Q1

REPORT INFORMATION
  Report Type: 
  Country: None (occurrence: None)
  Receive Date: 20080331
  Receipt Date: 20050824
  Transmission Date: 20080703
  Serious: Yes (Death)
  Sender: FDA-Public Use
  Company Number: CA-ROCHE-415720

PATIENT
  Age: 38 Year
  Sex: Female
  Weight: 142.9 kg

DRUGS (1)
  1. XENICAL [Suspect]
     Indication: OBESITY
     Route: 048
     Dates: start: 20041113, end: 20050101

REACTIONS (1)
  - DEATH [None]
